FAERS Safety Report 4864245-9 (Version None)
Quarter: 2005Q4

REPORT INFORMATION
  Report Type: 
  Country: None (occurrence: None)
  Receive Date: 20051222
  Receipt Date: 20051213
  Transmission Date: 20060501
  Serious: Yes (Other)
  Sender: FDA-Public Use
  Company Number: 2005GB02420

PATIENT
  Age: 72 Year
  Sex: Male
  Weight: 76.2 kg

DRUGS (2)
  1. BUDESONIDE [Suspect]
     Indication: HYPERSENSITIVITY
     Route: 045
     Dates: start: 20051025, end: 20051115
  2. PANTOPRAZOLE [Concomitant]
     Indication: GASTROINTESTINAL DISORDER
     Route: 048
     Dates: start: 20040720

REACTIONS (2)
  - ANAPHYLACTOID REACTION [None]
  - SWELLING [None]
